FAERS Safety Report 5485439-8 (Version None)
Quarter: 2007Q4

REPORT INFORMATION
  Report Type: 
  Country: None (occurrence: None)
  Receive Date: 20071011
  Receipt Date: 20071009
  Transmission Date: 20080405
  Serious: Yes (Life-Threatening, Hospitalization)
  Sender: FDA-Public Use
  Company Number: TCI2007A04151

PATIENT
  Age: 74 Year
  Sex: Female

DRUGS (2)
  1. LANSOPRAZOLE [Suspect]
     Indication: GASTROOESOPHAGEAL REFLUX DISEASE
     Dosage: 15 MG (15 MG, 1 IN 1 D); PER ORAL
     Route: 048
     Dates: start: 20070511, end: 20070629
  2. GASMOTIN (MOSAPRIDE CITRATE) (TABLETS) [Concomitant]

REACTIONS (7)
  - ANOREXIA [None]
  - CONSTIPATION [None]
  - CRYPTOGENIC ORGANISING PNEUMONIA [None]
  - DRUG ERUPTION [None]
  - NAUSEA [None]
  - PROCEDURAL COMPLICATION [None]
  - WEIGHT DECREASED [None]
